FAERS Safety Report 8797369 (Version 1)
Quarter: 2012Q4

REPORT INFORMATION
  Report Type: 
  Country: US (occurrence: US)
  Receive Date: 20120920
  Receipt Date: 20120920
  Transmission Date: 20130627
  Serious: Yes (Other)
  Sender: FDA-Public Use
  Company Number: US-PURDUE-USA-2012-0092814

PATIENT
  Age: 33 Year
  Sex: Female

DRUGS (1)
  1. OXYCONTIN (NDA 22-272) [Suspect]
     Indication: PAIN
     Dosage: 20 mg, q8h
     Route: 048

REACTIONS (3)
  - Arnold-Chiari malformation [Unknown]
  - Hydrocephalus [Unknown]
  - Pain [Unknown]
